FAERS Safety Report 23685545 (Version 1)
Quarter: 2024Q1

REPORT INFORMATION
  Report Type: Spontaneous
  Country: US (occurrence: US)
  Receive Date: 20240329
  Receipt Date: 20240329
  Transmission Date: 20240410
  Serious: No
  Sender: FDA-Public Use
  Company Number: US-SA-SAC20240321001056

PATIENT
  Age: 33 Year
  Sex: Male

DRUGS (1)
  1. DUPIXENT [Suspect]
     Active Substance: DUPILUMAB
     Indication: Eosinophilic oesophagitis
     Dosage: 300 MG, QOW
     Route: 058
     Dates: end: 202312

REACTIONS (5)
  - Skin irritation [Unknown]
  - Injection site vesicles [Recovered/Resolved]
  - Eosinophilic oesophagitis [Unknown]
  - Arthralgia [Recovered/Resolved]
  - Inappropriate schedule of product administration [Unknown]
